FAERS Safety Report 9280219 (Version 1)
Quarter: 2013Q2

REPORT INFORMATION
  Report Type: Spontaneous
  Country: ES (occurrence: ES)
  Receive Date: 20130509
  Receipt Date: 20130509
  Transmission Date: 20140414
  Serious: Yes (Hospitalization)
  Sender: FDA-Public Use
  Company Number: PHHY2013ES043438

PATIENT
  Age: 74 Year
  Sex: Male

DRUGS (9)
  1. ZOMETA [Suspect]
     Indication: METASTASES TO BONE
     Dosage: 3 MG, UNK
     Route: 042
     Dates: start: 20130201, end: 20130201
  2. RAMIPRIL [Suspect]
     Dosage: 2.5 MG, UNK
     Route: 048
     Dates: start: 20110117
  3. ZYTIGA [Suspect]
     Indication: PROSTATE CANCER METASTATIC
     Dosage: 1000 MG, UNK
     Route: 048
     Dates: start: 20130118, end: 20130208
  4. PANTOPRAZOL [Concomitant]
     Dosage: 20 MG, DAILY
     Route: 048
     Dates: start: 20110411
  5. ACETYLSALICYLIC ACID [Concomitant]
     Dosage: 100 MG, DAILY
     Route: 048
     Dates: start: 20130122
  6. PREDNISONE [Concomitant]
     Dosage: 10 MG, DAILY
     Route: 048
     Dates: start: 20130118
  7. AMLODIPINE [Concomitant]
     Dosage: 5 MG, DAILY
     Route: 048
     Dates: start: 20130122
  8. CALCIUM + VIT D [Concomitant]
     Dosage: UNK UKN, UNK
     Route: 048
     Dates: start: 20120405
  9. SEBRANE//DEXTROMETHORPHAN HYDROBROMIDE [Concomitant]
     Dosage: 0.4 MG, DAILY
     Route: 048
     Dates: start: 20111021

REACTIONS (1)
  - Toxic epidermal necrolysis [Recovered/Resolved]
